FAERS Safety Report 8863271 (Version 1)
Quarter: 2012Q4

REPORT INFORMATION
  Report Type: Report from Study
  Country: ES (occurrence: ES)
  Receive Date: 20121025
  Receipt Date: 20121025
  Transmission Date: 20130627
  Serious: Yes (Death)
  Sender: FDA-Public Use
  Company Number: ES-PFIZER INC-2012262057

PATIENT
  Sex: Male

DRUGS (2)
  1. SERTRALINE HCL [Suspect]
     Dosage: UNK
     Route: 064
  2. MESALAZINE [Suspect]
     Dosage: UNK

REACTIONS (4)
  - Maternal exposure timing unspecified [Fatal]
  - Cardiac septal defect [Fatal]
  - Hydrocephalus [Fatal]
  - Exomphalos [Fatal]
